FAERS Safety Report 9834112 (Version 2)
Quarter: 2014Q1

REPORT INFORMATION
  Report Type: Report from Study
  Country: CO (occurrence: CO)
  Receive Date: 20140122
  Receipt Date: 20140130
  Transmission Date: 20141002
  Serious: No
  Sender: FDA-Public Use
  Company Number: CO-AMGEN-COLCT2013091898

PATIENT
  Age: 53 Year
  Sex: Female
  Weight: 54.2 kg

DRUGS (4)
  1. ETANERCEPT [Suspect]
     Indication: PRODUCT USED FOR UNKNOWN INDICATION
     Dosage: 50 MG, WEEKLY
     Route: 065
     Dates: start: 20120912
  2. METHOTREXATE [Concomitant]
     Indication: RHEUMATOID ARTHRITIS
     Dosage: 2.5 MG, UNK
     Route: 048
     Dates: start: 2000
  3. PREDNISOLON                        /00016201/ [Concomitant]
     Indication: RHEUMATOID ARTHRITIS
     Dosage: 5 MG, UNK
     Route: 048
     Dates: start: 2002
  4. CALCIUM CARBONATE W/VITAMIN D NOS [Concomitant]
     Indication: RHEUMATOID ARTHRITIS
     Dosage: 600+200 MG
     Route: 048
     Dates: start: 2000

REACTIONS (2)
  - Injection site oedema [Recovered/Resolved]
  - Injection site erythema [Recovered/Resolved]
